FAERS Safety Report 8515582-8 (Version None)
Quarter: 2012Q3

REPORT INFORMATION
  Report Type: 
  Country: None (occurrence: None)
  Receive Date: 20120717
  Receipt Date: 20120710
  Transmission Date: 20120928
  Serious: Yes (Other)
  Sender: FDA-Public Use
  Company Number: PHHY2012CA049607

PATIENT
  Sex: Male

DRUGS (15)
  1. SANDOSTATIN LAR [Suspect]
     Indication: ACROMEGALY
     Dosage: 10 MG, QMO
     Route: 030
     Dates: start: 20081103
  2. NITROGLYCERIN [Concomitant]
     Dosage: 1 DF (0.4), PRN
     Route: 060
  3. METFORMIN HYDROCHLORIDE [Concomitant]
     Dosage: 500 MG, BID
  4. PANTO [Concomitant]
     Dosage: 40 MG, QD
  5. METOPROLOL TARTRATE [Concomitant]
     Dosage: 25 MG, BID
  6. NITRO-DUR [Concomitant]
     Dosage: 1 DF (0.8 PATCH), BID (EVERY 12 HOURS)
  7. PLAVIX [Concomitant]
     Dosage: 75 MG, QD
  8. VITALUX [Concomitant]
     Dosage: 1 DF, ONCE DAILY
  9. ZOCOR [Concomitant]
     Dosage: 40 MG, QD
  10. ADALAT CC [Concomitant]
     Dosage: 60 MG, QD
  11. FERROUS GLUCONATE [Concomitant]
     Dosage: 300 MG, BID
  12. FLOMAX [Concomitant]
     Dosage: 0.4 MG, QD
  13. ADALAT CC [Concomitant]
     Dosage: 30 MG, QD
  14. ASPIRIN [Concomitant]
     Dosage: 81 MG, QD
  15. GLICLAZIDE [Concomitant]
     Dosage: 80 MG, BID

REACTIONS (4)
  - PNEUMONIA ASPIRATION [None]
  - COUGH [None]
  - PYREXIA [None]
  - MYOCARDIAL INFARCTION [None]
